FAERS Safety Report 6239222 (Version 2)
Quarter: 2013Q1

REPORT INFORMATION
  Report Type: Spontaneous
  Country: US (occurrence: US)
  Receive Date: 20070216
  Receipt Date: 20130312
  Transmission Date: 20140127
  Serious: Yes (Hospitalization)
  Sender: FDA-Public Use
  Company Number: US-AMGEN-KDL159562

PATIENT
  Age: 31 Year
  Sex: Male
  Weight: 99.9 kg

DRUGS (1)
  1. ENBREL [Suspect]
     Indication: PSORIASIS
     Dosage: 50 MG, 2 TIMES/WK
     Route: 058
     Dates: start: 20050216, end: 20051116

REACTIONS (2)
  - Demyelination [Not Recovered/Not Resolved]
  - Pulmonary arteriovenous fistula [Unknown]
